FAERS Safety Report 18721759 (Version 3)
Quarter: 2021Q2

REPORT INFORMATION
  Report Type: Spontaneous
  Country: US (occurrence: US)
  Receive Date: 20210110
  Receipt Date: 20210520
  Transmission Date: 20210717
  Serious: No
  Sender: FDA-Public Use
  Company Number: US-AMGEN-USASP2021001554

PATIENT
  Age: 75 Year
  Sex: Female

DRUGS (4)
  1. PROLIA [Suspect]
     Active Substance: DENOSUMAB
     Indication: OSTEOPOROSIS POSTMENOPAUSAL
     Dosage: 60 MILLIGRAM, Q6MO
     Route: 058
     Dates: start: 20201028
  2. CALCIUM [Concomitant]
     Active Substance: CALCIUM
  3. FOSAMAX [Concomitant]
     Active Substance: ALENDRONATE SODIUM
  4. ALENDRONATE [Concomitant]
     Active Substance: ALENDRONATE SODIUM

REACTIONS (8)
  - Pain in jaw [Unknown]
  - Insomnia [Unknown]
  - Gait disturbance [Unknown]
  - Muscle tightness [Not Recovered/Not Resolved]
  - Urinary tract infection [Unknown]
  - Back pain [Not Recovered/Not Resolved]
  - Pain in extremity [Not Recovered/Not Resolved]
  - Hypoacusis [Unknown]

NARRATIVE: CASE EVENT DATE: 20201104
